FAERS Safety Report 8453596-7 (Version None)
Quarter: 2012Q2

REPORT INFORMATION
  Report Type: 
  Country: None (occurrence: None)
  Receive Date: 20120620
  Receipt Date: 20120611
  Transmission Date: 20120825
  Serious: Yes (Hospitalization)
  Sender: FDA-Public Use
  Company Number: JP-MERCK-1205USA03953

PATIENT
  Age: 78 Year
  Sex: Female

DRUGS (4)
  1. JANUVIA [Suspect]
     Route: 048
     Dates: start: 20120524
  2. JANUVIA [Suspect]
     Indication: TYPE 2 DIABETES MELLITUS
     Route: 048
     Dates: end: 20120517
  3. AMLODIPINE TOWA [Concomitant]
     Route: 065
  4. ZOLPIDEM [Concomitant]
     Route: 065

REACTIONS (3)
  - FEMORAL NECK FRACTURE [None]
  - PYELONEPHRITIS [None]
  - URINARY TRACT INFECTION [None]
